FAERS Safety Report 6074689-8 (Version None)
Quarter: 2009Q1

REPORT INFORMATION
  Report Type: 
  Country: None (occurrence: None)
  Receive Date: 20090209
  Receipt Date: 20090209
  Transmission Date: 20090719
  Serious: Yes (Other)
  Sender: FDA-Public Use
  Company Number: None

PATIENT
  Sex: Male
  Weight: 106.5953 kg

DRUGS (1)
  1. CARBIDOPA + LEVODOPA [Suspect]
     Indication: RESTLESS LEGS SYNDROME
     Dosage: 25-100 DAILY
     Dates: start: 20081002, end: 20081014

REACTIONS (2)
  - GAIT DISTURBANCE [None]
  - PAIN [None]
